FAERS Safety Report 13411668 (Version 5)
Quarter: 2022Q3

REPORT INFORMATION
  Report Type: Spontaneous
  Country: US (occurrence: US)
  Receive Date: 20170406
  Receipt Date: 20220912
  Transmission Date: 20221026
  Serious: No
  Sender: FDA-Public Use
  Company Number: US-JNJFOC-20170303239

PATIENT
  Sex: Male

DRUGS (2)
  1. RISPERDAL [Suspect]
     Active Substance: RISPERIDONE
     Indication: Bipolar disorder
     Route: 048
     Dates: start: 20040908
  2. RISPERDAL [Suspect]
     Active Substance: RISPERIDONE
     Dosage: VARIABLE DOSES 0.25 MG AND 1 MG
     Route: 048
     Dates: start: 20070207, end: 20070830

REACTIONS (4)
  - Personality disorder [Unknown]
  - Emotional distress [Unknown]
  - Gynaecomastia [Unknown]
  - Drug ineffective [Unknown]
